FAERS Safety Report 14685107 (Version 1)
Quarter: 2018Q1

REPORT INFORMATION
  Report Type: Spontaneous
  Country: IT (occurrence: IT)
  Receive Date: 20180327
  Receipt Date: 20180327
  Transmission Date: 20180509
  Serious: Yes (Hospitalization)
  Sender: FDA-Public Use
  Company Number: IT-CONCORDIA PHARMACEUTICALS INC.-E2B_00010681

PATIENT
  Age: 77 Year
  Sex: Male

DRUGS (5)
  1. OMEPRAZEN [Concomitant]
     Active Substance: OMEPRAZOLE
  2. TRIATEC [Concomitant]
     Active Substance: RAMIPRIL
  3. COUMADIN [Concomitant]
     Active Substance: WARFARIN SODIUM
  4. DIGOXIN. [Suspect]
     Active Substance: DIGOXIN
     Indication: CARDIAC FAILURE
     Route: 048
     Dates: start: 20170101, end: 20170702
  5. ALMARYTM [Suspect]
     Active Substance: FLECAINIDE ACETATE
     Indication: TACHYCARDIA
     Route: 048
     Dates: start: 20170101, end: 20170702

REACTIONS (6)
  - Syncope [Unknown]
  - Vertigo [Unknown]
  - Bradycardia [Unknown]
  - Vomiting [Unknown]
  - Headache [Unknown]
  - Nausea [Unknown]

NARRATIVE: CASE EVENT DATE: 20170702
